FAERS Safety Report 8450413-6 (Version None)
Quarter: 2012Q2

REPORT INFORMATION
  Report Type: 
  Country: None (occurrence: None)
  Receive Date: 20120620
  Receipt Date: 20120614
  Transmission Date: 20120825
  Serious: Yes (Life-Threatening)
  Sender: FDA-Public Use
  Company Number: FR-SANOFI-AVENTIS-2012SA042536

PATIENT
  Age: 64 Year
  Sex: Male

DRUGS (7)
  1. FOSAMAX [Concomitant]
  2. ARAVA [Suspect]
     Indication: RHEUMATOID ARTHRITIS
     Dosage: STRENGTH; 20 MG
     Route: 048
     Dates: start: 20040401, end: 20120314
  3. REMICADE [Suspect]
     Indication: RHEUMATOID ARTHRITIS
     Dosage: FREQ; EVERY 8 WEEK, STRENGTH; 100 MG
     Route: 042
     Dates: start: 20100511, end: 20120314
  4. CACIT D3 [Concomitant]
  5. PREDNISONE TAB [Concomitant]
     Indication: RHEUMATOID ARTHRITIS
     Route: 048
     Dates: start: 19960101
  6. ZOLEDRONIC ACID [Concomitant]
  7. PANTOPRAZOLE SODIUM [Concomitant]

REACTIONS (1)
  - PROSTATE CANCER [None]
